FAERS Safety Report 6276215-7 (Version None)
Quarter: 2009Q3

REPORT INFORMATION
  Report Type: 
  Country: None (occurrence: None)
  Receive Date: 20090722
  Receipt Date: 20090714
  Transmission Date: 20100115
  Serious: Yes (Hospitalization)
  Sender: FDA-Public Use
  Company Number: US-JNJFOC-20090705057

PATIENT
  Age: 31 Year
  Sex: Female
  Weight: 92.99 kg

DRUGS (2)
  1. EXTRA STRENGTH TYLENOL [Suspect]
     Indication: INSOMNIA
     Dosage: 2 CAPLETS, 1 TO 3 TIMES PER NIGHT
     Route: 048
  2. MULTI-VITAMINS [Concomitant]
     Indication: NUTRITIONAL SUPPORT

REACTIONS (4)
  - DIZZINESS [None]
  - DRUG INEFFECTIVE [None]
  - MALAISE [None]
  - OVERDOSE [None]
